FAERS Safety Report 8875642 (Version 4)
Quarter: 2013Q4

REPORT INFORMATION
  Report Type: Spontaneous
  Country: US (occurrence: US)
  Receive Date: 20121030
  Receipt Date: 20131015
  Transmission Date: 20140711
  Serious: Yes (Death, Hospitalization, Other)
  Sender: FDA-Public Use
  Company Number: US-009507513-1210USA009555

PATIENT
  Sex: Female

DRUGS (4)
  1. FOSAMAX [Suspect]
     Indication: OSTEOPOROSIS
     Dosage: 70 MG, QW
     Route: 048
     Dates: start: 2005, end: 201205
  2. ALENDRONATE SODIUM [Suspect]
     Indication: OSTEOPOROSIS
     Dosage: 70 MG, UNK
  3. VITAMINS (UNSPECIFIED) [Concomitant]
     Dosage: 1 QD
     Dates: start: 1988
  4. INSULIN [Concomitant]
     Indication: TYPE 1 DIABETES MELLITUS
     Dosage: UNK
     Dates: start: 2000

REACTIONS (15)
  - Femur fracture [Unknown]
  - Open reduction of fracture [Unknown]
  - Neoplasm malignant [Fatal]
  - Malignant peritoneal neoplasm [Fatal]
  - Peroneal nerve palsy [Unknown]
  - Low turnover osteopathy [Unknown]
  - Impaired healing [Recovering/Resolving]
  - Fall [Unknown]
  - Head injury [Unknown]
  - Treatment noncompliance [Unknown]
  - Wound [Unknown]
  - Osteoarthritis [Unknown]
  - Knee deformity [Unknown]
  - Joint contracture [Unknown]
  - Loss of anatomical alignment after fracture reduction [Unknown]
